FAERS Safety Report 23757963 (Version 1)
Quarter: 2024Q2

REPORT INFORMATION
  Report Type: Spontaneous
  Country: US (occurrence: None)
  Receive Date: 20240418
  Receipt Date: 20240418
  Transmission Date: 20240715
  Serious: Yes (Disabling)
  Sender: FDA-Public Use
  Company Number: None

PATIENT
  Age: 61 Year
  Sex: Female
  Weight: 67.5 kg

DRUGS (7)
  1. VABYSMO [Suspect]
     Active Substance: FARICIMAB\FARICIMAB-SVOA
     Indication: Retinal neovascularisation
     Dosage: OTHER FREQUENCY : MONTHLY?
     Route: 047
     Dates: start: 20230615, end: 20230803
  2. PRAVASTATIN [Concomitant]
     Active Substance: PRAVASTATIN
  3. PREDNISOLONE ACETATE [Concomitant]
     Active Substance: PREDNISOLONE ACETATE
  4. MURO 128 [Concomitant]
     Active Substance: SODIUM CHLORIDE
  5. OMEGA 3 PRESERVISION [Concomitant]
  6. B-COMPLEX SUPPLEMENTS [Concomitant]
  7. FAMOTIDINE [Concomitant]
     Active Substance: FAMOTIDINE

REACTIONS (11)
  - Vitreous floaters [None]
  - Ocular hyperaemia [None]
  - Intraocular pressure increased [None]
  - Endophthalmitis [None]
  - Streptococcus test positive [None]
  - Penicillium test positive [None]
  - Bacterial infection [None]
  - Blindness unilateral [None]
  - Cataract [None]
  - Retinal detachment [None]
  - Photophobia [None]

NARRATIVE: CASE EVENT DATE: 20230804
